FAERS Safety Report 17971307 (Version 6)
Quarter: 2020Q3

REPORT INFORMATION
  Report Type: Spontaneous
  Country: US (occurrence: US)
  Receive Date: 20200701
  Receipt Date: 20200821
  Transmission Date: 20201103
  Serious: Yes (Other)
  Sender: FDA-Public Use
  Company Number: US-009507513-2006USA010969

PATIENT
  Age: 28 Year
  Sex: Female
  Weight: 65.31 kg

DRUGS (5)
  1. NEXPLANON [Suspect]
     Active Substance: ETONOGESTREL
     Indication: CONTRACEPTION
     Dosage: 1 ROD, EVERY 3 YEARS
     Route: 059
     Dates: start: 20200226, end: 20200707
  2. NEXPLANON [Suspect]
     Active Substance: ETONOGESTREL
     Indication: CONTRACEPTION
     Dosage: UNK
     Route: 059
  3. PROGESTIN [Concomitant]
     Active Substance: PROGESTERONE
     Indication: CONTRACEPTION
     Dosage: FORMULATION: PILL
  4. NEXPLANON [Suspect]
     Active Substance: ETONOGESTREL
     Dosage: 68 MILLIGRAM (1 IMPLANT)
     Route: 059
     Dates: start: 201512, end: 201904
  5. NEXPLANON [Suspect]
     Active Substance: ETONOGESTREL
     Dosage: 1 IMPLANT
     Route: 059
     Dates: end: 20200226

REACTIONS (9)
  - Implant site thrombosis [Not Recovered/Not Resolved]
  - Implant site vesicles [Recovering/Resolving]
  - Implant site pain [Not Recovered/Not Resolved]
  - Implant site infection [Recovering/Resolving]
  - Implant site swelling [Recovering/Resolving]
  - Implant site haematoma [Not Recovered/Not Resolved]
  - Keloid scar [Unknown]
  - Implant site warmth [Not Recovered/Not Resolved]
  - Incorrect product administration duration [Unknown]

NARRATIVE: CASE EVENT DATE: 2020
